FAERS Safety Report 12183266 (Version 1)
Quarter: 2016Q1

REPORT INFORMATION
  Report Type: Spontaneous
  Country: US (occurrence: None)
  Receive Date: 20160315
  Receipt Date: 20160315
  Transmission Date: 20160526
  Serious: Yes (Disabling)
  Sender: FDA-Public Use
  Company Number: None

PATIENT
  Age: 31 Year
  Sex: Male
  Weight: 65.32 kg

DRUGS (12)
  1. CYMBALTA [Concomitant]
     Active Substance: DULOXETINE HYDROCHLORIDE
  2. NEUROTIN [Concomitant]
     Active Substance: GABAPENTIN
  3. PERCOCET [Concomitant]
     Active Substance: ACETAMINOPHEN\OXYCODONE HYDROCHLORIDE
  4. SIMVISTATIN [Concomitant]
     Active Substance: SIMVASTATIN
  5. XANAX [Concomitant]
     Active Substance: ALPRAZOLAM
  6. PENNSAID [Suspect]
     Active Substance: DICLOFENAC SODIUM
     Indication: PAIN
     Dosage: APPLY ENTIRE PACKET TO AREA INTO THE MUSCLE
     Route: 030
     Dates: start: 20160304, end: 20160305
  7. INSULIN [Concomitant]
     Active Substance: INSULIN NOS
  8. OXYTOCIN. [Concomitant]
     Active Substance: OXYTOCIN
  9. INSULIN PUMP [Concomitant]
     Active Substance: INSULIN NOS
  10. PLEXUS TRIPLEX [Concomitant]
  11. XFACTOR VITAMINS [Concomitant]
  12. LISINOPRIL. [Concomitant]
     Active Substance: LISINOPRIL

REACTIONS (3)
  - Migraine [None]
  - Blindness unilateral [None]
  - Blindness transient [None]

NARRATIVE: CASE EVENT DATE: 20160305
